FAERS Safety Report 20169684 (Version 1)
Quarter: 2021Q4

REPORT INFORMATION
  Report Type: Spontaneous
  Country: US (occurrence: US)
  Receive Date: 20211210
  Receipt Date: 20211210
  Transmission Date: 20220303
  Serious: Yes (Hospitalization, Other)
  Sender: FDA-Public Use
  Company Number: US-SA-SAC20211209001395

PATIENT
  Age: 71 Year
  Sex: Female

DRUGS (13)
  1. DUPIXENT [Suspect]
     Active Substance: DUPILUMAB
     Indication: Dermatitis atopic
     Dosage: 300 MG, QOW
     Route: 058
     Dates: end: 202111
  2. ACETAMINOPHEN\HYDROCODONE [Concomitant]
     Active Substance: ACETAMINOPHEN\HYDROCODONE
  3. ATROPINE\DIPHENOXYLATE [Concomitant]
     Active Substance: ATROPINE\DIPHENOXYLATE
  4. PANTOPRAZOLE SODIUM [Concomitant]
     Active Substance: PANTOPRAZOLE SODIUM
  5. ELIQUIS [Concomitant]
     Active Substance: APIXABAN
  6. CARAFATE [Concomitant]
     Active Substance: SUCRALFATE
  7. SUCRALFATE [Concomitant]
     Active Substance: SUCRALFATE
  8. NARCAN [Concomitant]
     Active Substance: NALOXONE HYDROCHLORIDE
  9. CALCIUM [Concomitant]
     Active Substance: CALCIUM
  10. ALLOPURINOL [Concomitant]
     Active Substance: ALLOPURINOL
  11. TRAMADOL [Concomitant]
     Active Substance: TRAMADOL
  12. POLYCARBOPHIL [Concomitant]
     Active Substance: POLYCARBOPHIL
  13. ALLERGY RELIEF [CETIRIZINE HYDROCHLORIDE] [Concomitant]

REACTIONS (5)
  - Clostridium difficile infection [Unknown]
  - Escherichia infection [Unknown]
  - Lower limb fracture [Unknown]
  - Dizziness [Unknown]
  - Fall [Unknown]

NARRATIVE: CASE EVENT DATE: 20211101
